FAERS Safety Report 8456153-1 (Version None)
Quarter: 2012Q2

REPORT INFORMATION
  Report Type: 
  Country: None (occurrence: None)
  Receive Date: 20120621
  Receipt Date: 20120620
  Transmission Date: 20120825
  Serious: Yes (Death, Other)
  Sender: FDA-Public Use
  Company Number: PHHY2012AU052745

PATIENT
  Sex: Female

DRUGS (1)
  1. FEMARA [Suspect]
     Indication: BREAST CANCER
     Dosage: UNK
     Route: 048
     Dates: start: 20100101

REACTIONS (4)
  - PANCREATIC CARCINOMA [None]
  - BLOOD CALCIUM INCREASED [None]
  - TUMOUR MARKER INCREASED [None]
  - NEOPLASM MALIGNANT [None]
